FAERS Safety Report 8539753-X (Version None)
Quarter: 2012Q3

REPORT INFORMATION
  Report Type: 
  Country: None (occurrence: None)
  Receive Date: 20120726
  Receipt Date: 20120719
  Transmission Date: 20120928
  Serious: No
  Sender: FDA-Public Use
  Company Number: US-BAYER-2012-073158

PATIENT
  Age: 47 Year
  Sex: Female
  Weight: 70.295 kg

DRUGS (5)
  1. KEPPRA [Concomitant]
     Dosage: 1000 MG, UNK
  2. WELLBUTRIN [Concomitant]
     Dosage: 100 MG, UNK
  3. PERCOCET [Concomitant]
     Dosage: 5-325 MG
  4. BETASERON [Suspect]
     Dosage: 0.3 MG,
     Route: 058
  5. TYLENOL [Concomitant]
     Dosage: 325 MG, UNK

REACTIONS (7)
  - INJECTION SITE HAEMATOMA [None]
  - PYREXIA [None]
  - FATIGUE [None]
  - INJECTION SITE URTICARIA [None]
  - NAUSEA [None]
  - HEADACHE [None]
  - INFLUENZA LIKE ILLNESS [None]
